FAERS Safety Report 4718011-5 (Version None)
Quarter: 2005Q3

REPORT INFORMATION
  Report Type: 
  Country: None (occurrence: None)
  Receive Date: 20050718
  Receipt Date: 20050214
  Transmission Date: 20060218
  Serious: No
  Sender: FDA-Public Use
  Company Number: 2005000340

PATIENT
  Age: 51 Year
  Sex: Female

DRUGS (3)
  1. TARCEVA [Suspect]
     Indication: NON-SMALL CELL LUNG CANCER
     Dosage: 150 MG (QD), ORAL
     Route: 048
     Dates: start: 20050113, end: 20050211
  2. PERCOCET [Concomitant]
  3. CLINDAMYCIN [Concomitant]

REACTIONS (5)
  - ORAL PAIN [None]
  - PHARYNGEAL OEDEMA [None]
  - RASH [None]
  - STOMATITIS [None]
  - TONGUE OEDEMA [None]
